FAERS Safety Report 16651955 (Version 4)
Quarter: 2019Q3

REPORT INFORMATION
  Report Type: Spontaneous
  Country: US (occurrence: US)
  Receive Date: 20190731
  Receipt Date: 20190926
  Transmission Date: 20191004
  Serious: No
  Sender: FDA-Public Use
  Company Number: US-PFIZER INC-2019326237

PATIENT
  Age: 76 Year
  Sex: Female
  Weight: 60.77 kg

DRUGS (3)
  1. CHANTIX [Suspect]
     Active Substance: VARENICLINE TARTRATE
     Dosage: ONE 1 MG PILL TWICE A DAY
  2. CHANTIX [Suspect]
     Active Substance: VARENICLINE TARTRATE
     Indication: SMOKING CESSATION THERAPY
     Dosage: 0.5 MG FOR 3 DAYS
     Dates: start: 20190703
  3. CHANTIX [Suspect]
     Active Substance: VARENICLINE TARTRATE
     Dosage: TWO 1MG MORNING AND EVENING
     Dates: end: 20190720

REACTIONS (3)
  - Drug hypersensitivity [Unknown]
  - Urticaria [Recovering/Resolving]
  - Rash generalised [Unknown]

NARRATIVE: CASE EVENT DATE: 20190720
